FAERS Safety Report 14547486 (Version 1)
Quarter: 2018Q1

REPORT INFORMATION
  Report Type: Spontaneous
  Country: KR (occurrence: KR)
  Receive Date: 20180219
  Receipt Date: 20180219
  Transmission Date: 20180509
  Serious: Yes (Hospitalization, Other)
  Sender: FDA-Public Use
  Company Number: KR-MYLANLABS-2018M1011279

PATIENT
  Age: 61 Year
  Sex: Male

DRUGS (2)
  1. CAPECITABINE. [Concomitant]
     Active Substance: CAPECITABINE
     Indication: COLON CANCER
     Dosage: UNK
     Route: 065
  2. OXALIPLATIN. [Suspect]
     Active Substance: OXALIPLATIN
     Indication: COLON CANCER
     Dosage: UNK
     Route: 050

REACTIONS (8)
  - Dysarthria [Unknown]
  - Gait disturbance [Unknown]
  - Thrombocytopenia [Unknown]
  - Lethargy [Unknown]
  - Tubulointerstitial nephritis [Recovering/Resolving]
  - Haemolytic anaemia [Unknown]
  - Hypersensitivity [Unknown]
  - Weight increased [Unknown]
